FAERS Safety Report 25161216 (Version 1)
Quarter: 2025Q2

REPORT INFORMATION
  Report Type: Spontaneous
  Country: US (occurrence: None)
  Receive Date: 20250404
  Receipt Date: 20250404
  Transmission Date: 20250716
  Serious: Yes (Life-Threatening, Hospitalization, Disabling, Other)
  Sender: FDA-CTU
  Company Number: None

PATIENT
  Age: 47 Year
  Sex: Female

DRUGS (5)
  1. KEYTRUDA [Suspect]
     Active Substance: PEMBROLIZUMAB
     Indication: Neoplasm malignant
     Dates: start: 20250205, end: 20250226
  2. VA-ECMO [Concomitant]
  3. PACEMARKER [Concomitant]
  4. STEROIDS THERAPY [Concomitant]
  5. MULTIPLE CARDIAC + PAIN MEDICATIONS [Concomitant]

REACTIONS (2)
  - Myocarditis [None]
  - Critical illness [None]

NARRATIVE: CASE EVENT DATE: 20250319
